FAERS Safety Report 7956549-8 (Version None)
Quarter: 2011Q4

REPORT INFORMATION
  Report Type: 
  Country: None (occurrence: None)
  Receive Date: 20111205
  Receipt Date: 20111130
  Transmission Date: 20120403
  Serious: Yes (Hospitalization)
  Sender: FDA-Public Use
  Company Number: PT-PFIZER INC-2011291769

PATIENT
  Sex: Female

DRUGS (2)
  1. MIFEPRISTONE (MIFEPREX) [Suspect]
     Indication: ABORTION INDUCED
  2. CYTOTEC [Suspect]
     Indication: ABORTION INDUCED

REACTIONS (2)
  - DRUG INEFFECTIVE FOR UNAPPROVED INDICATION [None]
  - ABORTION INDUCED INCOMPLETE [None]
